FAERS Safety Report 8540453-0 (Version None)
Quarter: 2012Q3

REPORT INFORMATION
  Report Type: 
  Country: None (occurrence: None)
  Receive Date: 20120726
  Receipt Date: 20111122
  Transmission Date: 20120928
  Serious: No
  Sender: FDA-Public Use
  Company Number: US-ASTRAZENECA-2011SE42822

PATIENT
  Age: 60 Year
  Sex: Female

DRUGS (17)
  1. SEROQUEL XR [Suspect]
     Route: 048
     Dates: start: 20110616, end: 20110622
  2. CLOZARIL [Concomitant]
     Dates: end: 20110310
  3. SEROQUEL XR [Suspect]
     Route: 048
     Dates: start: 20110413, end: 20110415
  4. SEROQUEL XR [Suspect]
     Route: 048
     Dates: start: 20110415, end: 20110616
  5. NEURONTIN [Concomitant]
     Dates: start: 20050809, end: 20110710
  6. HYDROXYZINE [Concomitant]
     Dates: start: 20050809, end: 20110710
  7. SEROQUEL XR [Suspect]
     Route: 048
     Dates: start: 20110630, end: 20110705
  8. CYMBALTA [Concomitant]
     Dates: start: 20110616, end: 20110710
  9. WELLBUTRIN SR [Concomitant]
     Dates: start: 20110413, end: 20110425
  10. PROZAC [Concomitant]
     Dates: start: 20050809, end: 20110710
  11. ABILIFY [Concomitant]
     Dates: start: 20050809, end: 20110710
  12. RISPERDAL [Concomitant]
     Dosage: 1 MG PRESCRIBED, PHARMACY GAVE PATIENT 2 MG
     Route: 048
     Dates: start: 20071127, end: 20110609
  13. ZYPREXA [Concomitant]
     Dates: start: 20050809, end: 20110710
  14. AMITRIPTYLINE HYDROCHLORIDE [Concomitant]
     Dates: start: 20050809, end: 20110710
  15. SEROQUEL XR [Suspect]
     Route: 048
     Dates: start: 20110622, end: 20110630
  16. CYMBALTA [Concomitant]
     Dates: start: 20110525, end: 20110616
  17. CLOZARIL [Concomitant]
     Dates: start: 20050809, end: 20110710

REACTIONS (14)
  - CANDIDIASIS [None]
  - DRY MOUTH [None]
  - HEADACHE [None]
  - NASAL DRYNESS [None]
  - DECREASED APPETITE [None]
  - INSOMNIA [None]
  - HYPERSENSITIVITY [None]
  - STOMATITIS [None]
  - DRY EYE [None]
  - DYSKINESIA [None]
  - CONDITION AGGRAVATED [None]
  - PRURITUS [None]
  - DYSGEUSIA [None]
  - ORAL MUCOSAL DISCOLOURATION [None]
